FAERS Safety Report 4979604-3 (Version None)
Quarter: 2006Q2

REPORT INFORMATION
  Report Type: 
  Country: None (occurrence: None)
  Receive Date: 20060421
  Receipt Date: 20060221
  Transmission Date: 20061013
  Serious: Yes (Hospitalization)
  Sender: FDA-Public Use
  Company Number: JP-ROCHE-437855

PATIENT
  Age: 2 Year
  Sex: Male
  Weight: 12 kg

DRUGS (4)
  1. TAMIFLU [Suspect]
     Route: 048
     Dates: start: 20060218, end: 20060219
  2. TAMIFLU [Suspect]
     Route: 048
     Dates: start: 20060220, end: 20060220
  3. COCARL [Concomitant]
     Route: 048
     Dates: start: 20060218, end: 20060218
  4. HOKUNALIN [Concomitant]
     Dosage: DOSE FORM REPORTED AS TAPE.
     Route: 061
     Dates: start: 20060218, end: 20060218

REACTIONS (2)
  - PETECHIAE [None]
  - PLATELET COUNT DECREASED [None]
